FAERS Safety Report 24185723 (Version 1)
Quarter: 2024Q3

REPORT INFORMATION
  Report Type: Spontaneous
  Country: US (occurrence: US)
  Receive Date: 20240807
  Receipt Date: 20240807
  Transmission Date: 20241017
  Serious: Yes (Hospitalization, Other)
  Sender: APELLIS PHARMACEUTICALS
  Company Number: US-APELLIS-2024-APL-0000631

PATIENT

DRUGS (1)
  1. EMPAVELI [Suspect]
     Active Substance: PEGCETACOPLAN
     Indication: Paroxysmal nocturnal haemoglobinuria
     Dosage: 1080 MG, I THINK HE IS BACK TO TWICE A WEEK
     Route: 058

REACTIONS (6)
  - Injury [Unknown]
  - Acute kidney injury [Not Recovered/Not Resolved]
  - Product dose omission issue [Unknown]
  - Blood lactate dehydrogenase increased [Recovering/Resolving]
  - Off label use [Unknown]
  - Blood creatine phosphokinase increased [Not Recovered/Not Resolved]
